FAERS Safety Report 21738303 (Version 4)
Quarter: 2023Q1

REPORT INFORMATION
  Report Type: Report from Study
  Country: ES (occurrence: ES)
  Receive Date: 20221216
  Receipt Date: 20230131
  Transmission Date: 20230417
  Serious: Yes (Hospitalization, Other)
  Sender: FDA-Public Use
  Company Number: ES-002147023-NVSC2022ES290408

PATIENT
  Age: 55 Year
  Sex: Male

DRUGS (8)
  1. TRAMETINIB [Suspect]
     Active Substance: TRAMETINIB
     Indication: Colorectal cancer
     Dosage: 1.5 MG
     Route: 048
     Dates: start: 20220531, end: 20221205
  2. NIVOLUMAB [Suspect]
     Active Substance: NIVOLUMAB
     Indication: Colorectal cancer
     Dosage: 523.2 MG
     Route: 042
     Dates: start: 20220531, end: 20221115
  3. IPILIMUMAB [Suspect]
     Active Substance: IPILIMUMAB
     Indication: Colorectal cancer
     Dosage: 87.2 MG
     Route: 042
     Dates: start: 20220531, end: 20221115
  4. METAMIZOLE [Concomitant]
     Active Substance: METAMIZOLE
     Indication: Product used for unknown indication
     Dosage: 575 MG
     Route: 048
     Dates: start: 20220611
  5. LATANOPROST [Concomitant]
     Active Substance: LATANOPROST
     Indication: Glaucoma
     Dosage: UNK
     Route: 047
     Dates: start: 20220623
  6. LORAZEPAM [Concomitant]
     Active Substance: LORAZEPAM
     Indication: Product used for unknown indication
     Dosage: 0.5 MG
     Route: 048
     Dates: start: 20220628
  7. DOMPERIDONE [Concomitant]
     Active Substance: DOMPERIDONE
     Indication: Nausea
     Dosage: UNK
     Route: 048
     Dates: start: 20220809
  8. DEXKETOPROFEN [Concomitant]
     Active Substance: DEXKETOPROFEN
     Indication: Product used for unknown indication
     Dosage: UNK
     Route: 048
     Dates: start: 202208

REACTIONS (1)
  - Colitis [Recovered/Resolved]

NARRATIVE: CASE EVENT DATE: 20221205
